FAERS Safety Report 7592127-0 (Version None)
Quarter: 2011Q3

REPORT INFORMATION
  Report Type: 
  Country: None (occurrence: None)
  Receive Date: 20110706
  Receipt Date: 20110623
  Transmission Date: 20111222
  Serious: Yes (Other)
  Sender: FDA-Public Use
  Company Number: US-ELI_LILLY_AND_COMPANY-US201106007594

PATIENT
  Sex: Female

DRUGS (1)
  1. HUMATROPE [Suspect]
     Indication: BLOOD GROWTH HORMONE
     Dosage: 12 MG, QD
     Route: 065
     Dates: start: 20101223

REACTIONS (8)
  - MACULAR DEGENERATION [None]
  - VISUAL ACUITY REDUCED [None]
  - BENIGN NEOPLASM OF ADRENAL GLAND [None]
  - DRUG DOSE OMISSION [None]
  - INJECTION SITE HAEMORRHAGE [None]
  - PRESBYOPIA [None]
  - MENOPAUSE [None]
  - MEMORY IMPAIRMENT [None]
